FAERS Safety Report 18600155 (Version 2)
Quarter: 2020Q4

REPORT INFORMATION
  Report Type: Spontaneous
  Country: CO (occurrence: CO)
  Receive Date: 20201210
  Receipt Date: 20201218
  Transmission Date: 20210114
  Serious: Yes (Other)
  Sender: FDA-Public Use
  Company Number: CO-SA-2020SA350086

PATIENT

DRUGS (1)
  1. MYOZYME [Suspect]
     Active Substance: ALGLUCOSIDASE ALFA
     Indication: GLYCOGEN STORAGE DISEASE TYPE II
     Dosage: UNK UNK, QOW
     Route: 041
     Dates: start: 2017

REACTIONS (6)
  - Pain in extremity [Recovering/Resolving]
  - Urinary tract infection bacterial [Unknown]
  - Nausea [Recovered/Resolved]
  - Arthralgia [Recovering/Resolving]
  - Ear discomfort [Recovered/Resolved]
  - Muscle spasms [Recovering/Resolving]

NARRATIVE: CASE EVENT DATE: 202011
